FAERS Safety Report 5833821-9 (Version None)
Quarter: 2008Q3

REPORT INFORMATION
  Report Type: 
  Country: None (occurrence: None)
  Receive Date: 20080801
  Receipt Date: 20080801
  Transmission Date: 20090109
  Serious: No
  Sender: FDA-Public Use
  Company Number: None

PATIENT
  Age: 46 Year
  Sex: Male

DRUGS (2)
  1. ARIPIPRAZOLE [Suspect]
     Indication: BIPOLAR DISORDER
     Dosage: 8 MG AT BEDTIME PO
     Route: 048
     Dates: start: 20080626, end: 20080715
  2. ARIPIPRAZOLE [Suspect]
     Indication: MANIA
     Dosage: 8 MG AT BEDTIME PO
     Route: 048
     Dates: start: 20080626, end: 20080715

REACTIONS (2)
  - BLOOD CREATINE PHOSPHOKINASE INCREASED [None]
  - MYALGIA [None]
